FAERS Safety Report 6033114-3 (Version None)
Quarter: 2009Q1

REPORT INFORMATION
  Report Type: 
  Country: None (occurrence: None)
  Receive Date: 20090109
  Receipt Date: 20090105
  Transmission Date: 20090719
  Serious: Yes (Other)
  Sender: FDA-Public Use
  Company Number: US-ABBOTT-09P-163-0496415-00

PATIENT
  Sex: Female
  Weight: 81.72 kg

DRUGS (6)
  1. SYNTHROID [Suspect]
     Indication: HYPOTHYROIDISM
     Route: 048
     Dates: start: 20030101, end: 20040101
  2. SYNTHROID [Suspect]
     Route: 048
     Dates: start: 20040101, end: 20060101
  3. METFORMIN HCL [Concomitant]
     Indication: BLOOD TESTOSTERONE INCREASED
     Route: 048
  4. LEVOXYL [Concomitant]
     Indication: HYPOTHYROIDISM
     Dosage: 125 MCG X2 DAYS, THEN 62.5 MCG X 5 DAYS. 125MCG X2 DAY, THEN 62.5MCG X5 DAY
     Route: 048
     Dates: start: 20060901
  5. CYTOMEL [Concomitant]
     Indication: TRI-IODOTHYRONINE FREE ABNORMAL
     Route: 048
  6. ASPIRIN [Concomitant]
     Indication: INHIBITING ANTIBODIES
     Route: 048

REACTIONS (10)
  - ABORTION SPONTANEOUS [None]
  - ANTIPHOSPHOLIPID ANTIBODIES [None]
  - ATTENTION DEFICIT/HYPERACTIVITY DISORDER [None]
  - DEPRESSION [None]
  - FATIGUE [None]
  - GASTROOESOPHAGEAL REFLUX DISEASE [None]
  - MEMORY IMPAIRMENT [None]
  - OESOPHAGEAL DISORDER [None]
  - SLEEP DISORDER [None]
  - WEIGHT INCREASED [None]
